FAERS Safety Report 18008931 (Version 1)
Quarter: 2020Q3

REPORT INFORMATION
  Report Type: Spontaneous
  Country: JP (occurrence: JP)
  Receive Date: 20200710
  Receipt Date: 20200710
  Transmission Date: 20201103
  Serious: Yes (Death, Hospitalization, Other)
  Sender: FDA-Public Use
  Company Number: JP-GLAXOSMITHKLINE-JP2020122351

PATIENT
  Age: 72 Year
  Sex: Male

DRUGS (1)
  1. BENLYSTA [Suspect]
     Active Substance: BELIMUMAB
     Indication: SYSTEMIC LUPUS ERYTHEMATOSUS
     Dosage: 200 MG, WE(ON WEDNESDAY)
     Route: 058
     Dates: start: 201912

REACTIONS (8)
  - Ascites [Unknown]
  - Castleman^s disease [Fatal]
  - Pleurisy [Unknown]
  - Pyrexia [Fatal]
  - Pleural effusion [Unknown]
  - Dyspnoea [Unknown]
  - Skin oedema [Unknown]
  - Platelet count decreased [Unknown]

NARRATIVE: CASE EVENT DATE: 20191220
